FAERS Safety Report 4847603-8 (Version None)
Quarter: 2005Q4

REPORT INFORMATION
  Report Type: 
  Country: None (occurrence: None)
  Receive Date: 20051207
  Receipt Date: 20051128
  Transmission Date: 20060501
  Serious: Yes (Other)
  Sender: FDA-Public Use
  Company Number: PHBS2005JP17864

PATIENT
  Age: 4 Year
  Sex: Female

DRUGS (1)
  1. ZADITEN [Suspect]
     Dosage: 1 MG/DAY
     Route: 048
     Dates: start: 20020601, end: 20020601

REACTIONS (3)
  - CONVULSION [None]
  - HEMIPLEGIA [None]
  - MENTAL RETARDATION SEVERITY UNSPECIFIED [None]
